FAERS Safety Report 8424433-1 (Version None)
Quarter: 2012Q2

REPORT INFORMATION
  Report Type: 
  Country: None (occurrence: None)
  Receive Date: 20120608
  Receipt Date: 20120528
  Transmission Date: 20120825
  Serious: Yes (Other)
  Sender: FDA-Public Use
  Company Number: CO-AMGEN-COLSP2012034249

PATIENT
  Age: 64 Year
  Sex: Female

DRUGS (7)
  1. CORTISONE ACETATE [Concomitant]
     Dosage: 16 MG ONCE A DAY
  2. ENBREL [Suspect]
     Indication: PSORIATIC ARTHROPATHY
     Dosage: 50 MG, WEEKLY
  3. LYRICA [Concomitant]
     Dosage: 75 MG, TWICE A DAY
  4. TRAMADOL HCL [Concomitant]
     Dosage: UNK
  5. CORTISONE ACETATE [Concomitant]
     Dosage: 8 MG ONCE A DAY
  6. HYDROCHLOROTHIAZDE TAB [Concomitant]
     Dosage: UNK
  7. LOSARTAN [Concomitant]
     Dosage: 50 MG, ONCE A DAY

REACTIONS (1)
  - PERICARDIAL EFFUSION [None]
